FAERS Safety Report 17921630 (Version 1)
Quarter: 2020Q2

REPORT INFORMATION
  Report Type: Spontaneous
  Country: FR (occurrence: FR)
  Receive Date: 20200622
  Receipt Date: 20200622
  Transmission Date: 20200714
  Serious: Yes (Hospitalization, Other)
  Sender: FDA-Public Use
  Company Number: FR-BRISTOL-MYERS SQUIBB COMPANY-BMS-2020-047061

PATIENT
  Age: 68 Year
  Sex: Male

DRUGS (3)
  1. YERVOY [Suspect]
     Active Substance: IPILIMUMAB
     Indication: MALIGNANT MELANOMA
     Dosage: 297 MILLIGRAM
     Route: 041
     Dates: start: 20191209, end: 20200120
  2. OPDIVO [Suspect]
     Active Substance: NIVOLUMAB
     Indication: MALIGNANT MELANOMA
     Dosage: 99 MILLIGRAM
     Route: 041
     Dates: start: 20191209, end: 20200120
  3. PRIVIGEN [Suspect]
     Active Substance: HUMAN IMMUNOGLOBULIN G
     Indication: ACUTE POLYNEUROPATHY
     Dosage: UNK
     Route: 048
     Dates: start: 20200318, end: 20200321

REACTIONS (3)
  - Thrombocytopenia [Not Recovered/Not Resolved]
  - Autoimmune haemolytic anaemia [Not Recovered/Not Resolved]
  - Evans syndrome [Not Recovered/Not Resolved]

NARRATIVE: CASE EVENT DATE: 20200324
